FAERS Safety Report 4726062-X (Version None)
Quarter: 2005Q3

REPORT INFORMATION
  Report Type: 
  Country: None (occurrence: None)
  Receive Date: 20050725
  Receipt Date: 20050621
  Transmission Date: 20060218
  Serious: Yes (Other)
  Sender: FDA-Public Use
  Company Number: 2005093098

PATIENT
  Age: 45 Year
  Sex: Female

DRUGS (3)
  1. ZARONTIN SYRUP [Suspect]
     Indication: EPILEPSY
     Dosage: (2 IN 1 D), ORAL
     Route: 048
     Dates: start: 20050401
  2. PHENOBAARBITAL (PHENOBARBITAL) [Concomitant]
  3. CLOBAZAM (CLOBAZAM) [Concomitant]

REACTIONS (3)
  - CONDITION AGGRAVATED [None]
  - CONVULSION [None]
  - DRUG ADMINISTRATION ERROR [None]
